FAERS Safety Report 8625915-X (Version None)
Quarter: 2012Q3

REPORT INFORMATION
  Report Type: 
  Country: None (occurrence: None)
  Receive Date: 20120827
  Receipt Date: 20120823
  Transmission Date: 20120928
  Serious: Yes (Death, Other)
  Sender: FDA-Public Use
  Company Number: IE-PFIZER INC-2012154439

PATIENT
  Age: 72 Year
  Sex: Male

DRUGS (14)
  1. SULFASALAZINE [Concomitant]
     Indication: RHEUMATOID ARTHRITIS
     Dosage: 500 MG, 2X/DAY
     Route: 048
  2. BISOPROLOL [Concomitant]
     Dosage: UNK
  3. ALENDRONATE SODIUM [Concomitant]
     Dosage: 10 MG, WEEKLY
     Route: 048
  4. FUCIDINE CAP [Interacting]
     Indication: OSTEOMYELITIS
     Dosage: 500 MG, 3X/DAY
     Route: 048
     Dates: start: 20120516, end: 20120612
  5. LEFLUNOMIDE [Concomitant]
     Indication: RHEUMATOID ARTHRITIS
     Dosage: 20 MG, 1X/DAY
     Route: 048
  6. FLUCLOXACILLIN [Concomitant]
     Indication: OSTEOMYELITIS
     Dosage: 1 G, 4X/DAY
     Route: 042
  7. CALCIUM CARBONATE [Concomitant]
     Dosage: 1 DF, 2X/DAY
     Route: 048
  8. FERROUS SULFATE TAB [Concomitant]
     Dosage: 1 DF, 1X/DAY
     Route: 048
     Dates: start: 20120531, end: 20120612
  9. ISOSORBIDE MONONITRATE [Concomitant]
     Indication: MYOCARDIAL ISCHAEMIA
     Dosage: 30 MG, 1X/DAY
     Route: 048
  10. ASPIRIN [Concomitant]
     Indication: MYOCARDIAL ISCHAEMIA
     Dosage: 75 MG, 1X/DAY
     Route: 048
  11. PREDNISOLONE [Concomitant]
     Indication: RHEUMATOID ARTHRITIS
     Dosage: 5 MG, 1X/DAY
     Route: 048
  12. PARACETAMOL [Concomitant]
     Indication: ANALGESIC THERAPY
     Dosage: 1 G, 4X/DAY
     Route: 048
  13. IVABRADINE [Concomitant]
     Indication: MYOCARDIAL ISCHAEMIA
     Dosage: 5 MG, 2X/DAY
     Route: 048
  14. LIPITOR [Suspect]
     Dosage: 40 MG, 1X/DAY
     Route: 048
     Dates: end: 20120612

REACTIONS (10)
  - RENAL FAILURE ACUTE [None]
  - ORTHOSTATIC HYPOTENSION [None]
  - SEPSIS [None]
  - MULTI-ORGAN FAILURE [None]
  - DEHYDRATION [None]
  - DEBRIDEMENT [None]
  - GASTRITIS [None]
  - DRUG INTERACTION [None]
  - RHABDOMYOLYSIS [None]
  - DRUG ADMINISTRATION ERROR [None]
